FAERS Safety Report 7018828-0 (Version None)
Quarter: 2010Q3

REPORT INFORMATION
  Report Type: 
  Country: None (occurrence: None)
  Receive Date: 20100928
  Receipt Date: 20100917
  Transmission Date: 20110219
  Serious: Yes (Other)
  Sender: FDA-Public Use
  Company Number: BR-PFIZER INC-2010119404

PATIENT
  Age: 63 Year
  Sex: Female

DRUGS (1)
  1. LYRICA [Suspect]
     Indication: POLYNEUROPATHY
     Dosage: 150 MG, 3X/DAY
     Route: 048
     Dates: start: 20100101

REACTIONS (3)
  - COAGULOPATHY [None]
  - PAIN [None]
  - THROMBOCYTOPENIA [None]
